FAERS Safety Report 6406310-0 (Version None)
Quarter: 2009Q4

REPORT INFORMATION
  Report Type: 
  Country: None (occurrence: None)
  Receive Date: 20091019
  Receipt Date: 20091009
  Transmission Date: 20100525
  Serious: Yes (Hospitalization)
  Sender: FDA-Public Use
  Company Number: PHHO2009AT12468

PATIENT
  Sex: Male
  Weight: 80 kg

DRUGS (1)
  1. RAD 666 RAD+TAB [Suspect]
     Indication: METASTATIC RENAL CELL CARCINOMA
     Dosage: 10 MG
     Route: 048

REACTIONS (2)
  - ANAEMIA [None]
  - GASTRIC ULCER HAEMORRHAGE [None]
